FAERS Safety Report 8708928 (Version 2)
Quarter: 2013Q4

REPORT INFORMATION
  Report Type: Spontaneous
  Country: US (occurrence: US)
  Receive Date: 20120806
  Receipt Date: 20131031
  Transmission Date: 20140711
  Serious: No
  Sender: FDA-Public Use
  Company Number: US-009507513-2012SP024744

PATIENT
  Age: 63 Year
  Sex: Male
  Weight: 99.79 kg

DRUGS (4)
  1. LOTRIMIN AF [Suspect]
     Indication: TINEA CRURIS
     Dosage: 3 DF, UNKNOWN
     Route: 061
     Dates: start: 20120324
  2. LISINOPRIL [Concomitant]
     Indication: HYPERTENSION
     Dosage: 10 MG, UNKNOWN
  3. ASPIRIN [Concomitant]
     Indication: HYPERTENSION
     Dosage: 81 MG, UNKNOWN
  4. VITAMINS (UNSPECIFIED) [Concomitant]
     Indication: PRODUCT USED FOR UNKNOWN INDICATION
     Dosage: UNK UNK, UNKNOWN

REACTIONS (3)
  - Rash generalised [Recovered/Resolved]
  - Nodule [Recovered/Resolved]
  - Burning sensation [Recovered/Resolved]
